FAERS Safety Report 10272803 (Version 1)
Quarter: 2014Q2

REPORT INFORMATION
  Report Type: Spontaneous
  Country: US (occurrence: None)
  Receive Date: 20140630
  Receipt Date: 20140630
  Transmission Date: 20141212
  Serious: Yes (Disabling, Other)
  Sender: FDA-Public Use
  Company Number: None

PATIENT
  Age: 42 Year
  Sex: Female
  Weight: 82.56 kg

DRUGS (1)
  1. WELLBUTRIN [Suspect]
     Indication: DEPRESSION
     Dosage: 150 2X/DAY?ONCE DAILY?TAKEN BY MOUTH
     Route: 048
     Dates: start: 20140116, end: 20140216

REACTIONS (4)
  - Depression [None]
  - Product quality issue [None]
  - Suicidal ideation [None]
  - Product substitution issue [None]
